FAERS Safety Report 16082454 (Version 2)
Quarter: 2019Q3

REPORT INFORMATION
  Report Type: Spontaneous
  Country: ES (occurrence: ES)
  Receive Date: 20190318
  Receipt Date: 20190716
  Transmission Date: 20191004
  Serious: No
  Sender: FDA-Public Use
  Company Number: ES-JNJFOC-20190319693

PATIENT
  Age: 15 Year
  Sex: Female

DRUGS (14)
  1. IBUPROFEN. [Suspect]
     Active Substance: IBUPROFEN
     Dosage: 5, 50,100, 200, AND 250 MG ON THE 2ND DAY
     Route: 065
  2. DIPYRONE [Suspect]
     Active Substance: DIPYRONE
     Dosage: 5, 10, AND 50 MG, DURING THE 2ND DAY, AND 50, 150, AND 375 MG ON THE 3RD DAY;
     Route: 065
  3. IBUPROFEN. [Suspect]
     Active Substance: IBUPROFEN
     Dosage: 5, 50,100, 200, AND 250 MG ON THE 2ND DAY
     Route: 065
  4. DIPYRONE [Suspect]
     Active Substance: DIPYRONE
     Dosage: 5, 10, AND 50 MG, DURING THE 2ND DAY, AND 50, 150, AND 375 MG ON THE 3RD DAY;
     Route: 065
  5. DICLOFENAC [Suspect]
     Active Substance: DICLOFENAC
     Indication: DRUG PROVOCATION TEST
     Dosage: 5, 15 AND 30 MG ON THE 2ND DAY
     Route: 065
  6. DIPYRONE [Suspect]
     Active Substance: DIPYRONE
     Dosage: 5, 10, AND 50 MG, DURING THE 2ND DAY, AND 50, 150, AND 375 MG ON THE 3RD DAY;
     Route: 065
  7. IBUPROFEN. [Suspect]
     Active Substance: IBUPROFEN
     Indication: DRUG PROVOCATION TEST
     Dosage: 5, 50,100, 200, AND 250 MG ON THE 2ND DAY
     Route: 065
  8. DICLOFENAC [Suspect]
     Active Substance: DICLOFENAC
     Dosage: 5, 15 AND 30 MG ON THE 2ND DAY
     Route: 065
  9. DIPYRONE [Suspect]
     Active Substance: DIPYRONE
     Dosage: 5, 10, AND 50 MG, DURING THE 2ND DAY, AND 50, 150, AND 375 MG ON THE 3RD DAY;
     Route: 065
  10. DICLOFENAC [Suspect]
     Active Substance: DICLOFENAC
     Dosage: 5, 15 AND 30 MG ON THE 2ND DAY
     Route: 065
  11. IBUPROFEN. [Suspect]
     Active Substance: IBUPROFEN
     Dosage: 5, 50,100, 200, AND 250 MG ON THE 2ND DAY
     Route: 065
  12. IBUPROFEN. [Suspect]
     Active Substance: IBUPROFEN
     Dosage: 5, 50,100, 200, AND 250 MG ON THE 2ND DAY
     Route: 065
  13. DIPYRONE [Suspect]
     Active Substance: DIPYRONE
     Indication: DRUG PROVOCATION TEST
     Dosage: 5, 10, AND 50 MG, DURING THE 2ND DAY, AND 50, 150, AND 375 MG ON THE 3RD DAY;
     Route: 065
  14. DIPYRONE [Suspect]
     Active Substance: DIPYRONE
     Dosage: 5, 10, AND 50 MG, DURING THE 2ND DAY, AND 50, 150, AND 375 MG ON THE 3RD DAY;
     Route: 065

REACTIONS (3)
  - Off label use [Unknown]
  - Dermatitis allergic [Unknown]
  - Product use in unapproved indication [Unknown]
